FAERS Safety Report 26072085 (Version 1)
Quarter: 2025Q4

REPORT INFORMATION
  Report Type: Spontaneous
  Country: EU (occurrence: EU)
  Receive Date: 20251120
  Receipt Date: 20251120
  Transmission Date: 20260117
  Serious: Yes (Other)
  Sender: MYLAN
  Company Number: None

PATIENT
  Age: 65 Year
  Sex: Female
  Weight: 72 kg

DRUGS (4)
  1. PACLITAXEL [Suspect]
     Active Substance: PACLITAXEL
     Indication: Invasive lobular breast carcinoma
     Dosage: 80 MILLIGRAM/SQ. METER, QW
     Dates: start: 20231207, end: 20240223
  2. ZIEXTENZO [Suspect]
     Active Substance: PEGFILGRASTIM-BMEZ
     Indication: Invasive lobular breast carcinoma
     Dosage: UNK
  3. EPIRUBICIN [Concomitant]
     Active Substance: EPIRUBICIN
     Indication: Invasive lobular breast carcinoma
     Dosage: 90 MILLIGRAM/SQ. METER
     Dates: start: 20231011, end: 20231123
  4. CYCLOPHOSPHAMIDE [Concomitant]
     Active Substance: CYCLOPHOSPHAMIDE
     Indication: Invasive lobular breast carcinoma
     Dosage: 600 MILLIGRAM/SQ. METER
     Dates: start: 20231011, end: 20231123

REACTIONS (7)
  - Neutropenia [Recovered/Resolved]
  - Symptom recurrence [Recovered/Resolved]
  - Neuralgia [Recovered/Resolved]
  - Pain in extremity [Recovered/Resolved]
  - Peripheral swelling [Recovered/Resolved]
  - Alopecia [Recovered/Resolved]
  - Arthralgia [Recovered/Resolved]

NARRATIVE: CASE EVENT DATE: 20231018
